FAERS Safety Report 16499197 (Version 6)
Quarter: 2020Q3

REPORT INFORMATION
  Report Type: Report from Study
  Country: None (occurrence: US)
  Receive Date: 20190701
  Receipt Date: 20200923
  Transmission Date: 20201102
  Serious: Yes (Other)
  Sender: FDA-Public Use
  Company Number: US-ABBVIE-19K-163-2837071-00

PATIENT
  Sex: Female

DRUGS (2)
  1. HUMIRA [Suspect]
     Active Substance: ADALIMUMAB
     Indication: HIDRADENITIS
     Dosage: CITRATE FREE
     Route: 058
  2. HUMIRA [Suspect]
     Active Substance: ADALIMUMAB
     Indication: JUVENILE IDIOPATHIC ARTHRITIS
     Route: 058

REACTIONS (12)
  - Lupus-like syndrome [Unknown]
  - Pain [Unknown]
  - Arthralgia [Unknown]
  - Leukopenia [Unknown]
  - Condition aggravated [Unknown]
  - Stress [Unknown]
  - Anaemia [Unknown]
  - Rash papular [Unknown]
  - Vitamin D decreased [Unknown]
  - Vitamin B12 decreased [Unknown]
  - Mass [Recovering/Resolving]
  - Somnolence [Unknown]
